FAERS Safety Report 5132167-4 (Version None)
Quarter: 2006Q4

REPORT INFORMATION
  Report Type: 
  Country: None (occurrence: None)
  Receive Date: 20061017
  Receipt Date: 20061004
  Transmission Date: 20070319
  Serious: Yes (Hospitalization)
  Sender: FDA-Public Use
  Company Number: FABR-11671

PATIENT
  Age: 56 Year
  Sex: Male

DRUGS (3)
  1. FABRAZYME [Suspect]
     Indication: FABRY'S DISEASE
  2. ASPIRIN [Concomitant]
  3. COUMADIN [Concomitant]

REACTIONS (2)
  - DISEASE RECURRENCE [None]
  - TRANSIENT ISCHAEMIC ATTACK [None]
